FAERS Safety Report 8397117-6 (Version None)
Quarter: 2012Q2

REPORT INFORMATION
  Report Type: 
  Country: None (occurrence: None)
  Receive Date: 20120530
  Receipt Date: 20120525
  Transmission Date: 20120825
  Serious: Yes (Death)
  Sender: FDA-Public Use
  Company Number: GB-ROCHE-1072819

PATIENT
  Sex: Male
  Weight: 75 kg

DRUGS (10)
  1. XELODA [Suspect]
     Indication: GASTRIC CANCER
     Dosage: LAST DOSE PRIOR TO SAE 22/MAR/2012,MOST RECENT DOSE 1150MG
     Route: 048
     Dates: start: 20120322, end: 20120408
  2. PEPPERMINT OIL [Concomitant]
     Dates: start: 20110630, end: 20120418
  3. PERINDOPRIL ERBUMINE [Concomitant]
     Dates: start: 20120330, end: 20120411
  4. ACETAMINOPHEN [Concomitant]
  5. EPIRUBICIN HYDROCHLORIDE [Suspect]
     Indication: GASTRIC CANCER
     Dosage: MOST RECENT DOSE 95 MG GIVEN ON 22/MAR/2012
     Route: 042
     Dates: start: 20120322
  6. OMEPRAZOLE [Concomitant]
     Dates: start: 20111201, end: 20120418
  7. CISPLATIN [Suspect]
     Indication: GASTRIC CANCER
     Dosage: MOST RECENT DOSE 115 MG GIVEN ON 22/MAR/2012
     Route: 042
     Dates: start: 20120322
  8. FERROUS SULFATE TAB [Concomitant]
     Dates: start: 20111102, end: 20120418
  9. OMEPRAZOLE [Concomitant]
  10. BENDROFLUAZIDE [Concomitant]
     Route: 048
     Dates: start: 20120319, end: 20120411

REACTIONS (1)
  - BRONCHOPNEUMONIA [None]
